FAERS Safety Report 4428715-X (Version None)
Quarter: 2004Q3

REPORT INFORMATION
  Report Type: 
  Country: None (occurrence: None)
  Receive Date: 20040818
  Receipt Date: 20040121
  Transmission Date: 20050211
  Serious: No
  Sender: FDA-Public Use
  Company Number: US-BRISTOL-MYERS SQUIBB COMPANY-12483434

PATIENT
  Age: 53 Year
  Sex: Female
  Weight: 53 kg

DRUGS (2)
  1. TEQUIN [Suspect]
     Indication: INFECTION
     Route: 048
     Dates: start: 20040120, end: 20040120
  2. ESTRADIOL [Concomitant]

REACTIONS (2)
  - ASTHENIA [None]
  - POLLAKIURIA [None]
